FAERS Safety Report 7700211-3 (Version None)
Quarter: 2011Q3

REPORT INFORMATION
  Report Type: 
  Country: None (occurrence: None)
  Receive Date: 20110822
  Receipt Date: 20110816
  Transmission Date: 20111222
  Serious: Yes (Death, Hospitalization, Other)
  Sender: FDA-Public Use
  Company Number: US-ELI_LILLY_AND_COMPANY-US201108005646

PATIENT
  Sex: Female

DRUGS (2)
  1. BYETTA [Suspect]
     Dosage: UNK
     Route: 058
     Dates: start: 20060101, end: 20090101
  2. VICTOZA [Concomitant]
     Dosage: UNK
     Dates: start: 20090101, end: 20090101

REACTIONS (1)
  - PANCREATITIS NECROTISING [None]
